FAERS Safety Report 15434980 (Version 1)
Quarter: 2018Q3

REPORT INFORMATION
  Report Type: Spontaneous
  Country: US (occurrence: US)
  Receive Date: 20180924
  Receipt Date: 20180924
  Transmission Date: 20181010
  Serious: No
  Sender: FDA-Public Use
  Company Number: None

PATIENT
  Age: 76 Year
  Sex: Male
  Weight: 109.93 kg

DRUGS (9)
  1. METOPROLOL SUCCINATE 25 MG PO DAILY [Concomitant]
  2. OXAPROZIN 600 MG PO BID [Concomitant]
  3. ANORO ELLIPTA 62.5/25 MCG TAKE AS DIRECTED [Concomitant]
  4. VENTOLIN HFA 108 MCG INHALE 1 PUFF EVERY 4 HOURS PRN [Concomitant]
  5. ENTRESTO [Suspect]
     Active Substance: SACUBITRIL\VALSARTAN
     Indication: CARDIAC FAILURE
     Route: 048
  6. ATORVASTATIN 40 MG PO AT BEDTIME [Concomitant]
  7. FUROSEMIDE 20 MG PO DAILY PRN FOR SWELLING OR WEIGHT GAIN [Concomitant]
  8. ASPIRIN 325 MG 1/2 TABLET PO DAILY [Concomitant]
  9. CLOPIDOGREL 75 MG PO MONDAY, WEDNESDAY, FRIDAY [Concomitant]

REACTIONS (1)
  - Pruritus [None]

NARRATIVE: CASE EVENT DATE: 20180924
